FAERS Safety Report 9034917 (Version 1)
Quarter: 2013Q1

REPORT INFORMATION
  Report Type: Spontaneous
  Country: JP (occurrence: None)
  Receive Date: 20130116
  Receipt Date: 20130116
  Transmission Date: 20140127
  Serious: Yes (Hospitalization)
  Sender: FDA-Public Use
  Company Number: 219787

PATIENT
  Age: 70 Year
  Sex: Male
  Weight: 73.8 kg

DRUGS (11)
  1. DAIVONEX CREAM (CALCIPOTRIOL) (CREAM) [Suspect]
     Indication: PSORIASIS
     Route: 061
     Dates: start: 20101008
  2. TOCILIZUMAB (TOCILIZUMBA) [Suspect]
     Indication: RHEUMATOID ARTHRITIS
     Dosage: 11.5714 MG (162 MG, 1 IN 2 WK), SUBCUTANEOUS
     Route: 058
     Dates: start: 20101217
  3. ETODOLAC (ETODOLAC) (TABLET) [Suspect]
     Indication: RHEUMATOID ARTHRITIS
     Dosage: 400 MG (200 MG, 2 IN 1 D), ORAL
     Route: 048
     Dates: start: 20100402
  4. LANSOPRAZOLE (LANSOPRAZOLE) (TABLET) [Suspect]
     Indication: PRODUCT USED FOR UNKNOWN INDICATION
     Dosage: 15 MG (15 MG, 1 IN 1 D), ORAL
     Route: 048
     Dates: start: 20100402
  5. PREDNISOLONE (PREDNISOLONE) (TABLET) [Suspect]
     Indication: PRODUCT USED FOR UNKNOWN INDICATION
  6. REBAMIPIDE (REBAMIPIDE) (TABLET) [Suspect]
     Indication: PRODUCT USED FOR UNKNOWN INDICATION
     Dosage: 200 MG (100 MG, 2 IN 1 D), ORAL
     Route: 048
     Dates: start: 20100402
  7. OLMESARTAN MEDOXOMIL (OLMESARTAN MEDOXOMIL) (TABLET) [Suspect]
     Indication: HYPERTENSION
     Route: 048
     Dates: start: 20100529
  8. DIFLUPREDNATE (DIFLUPREDNATE) (CREAM) [Suspect]
     Indication: PSORIASIS
     Route: 061
  9. CROTAMITON (CROTAMITON) (CREAM) [Suspect]
     Indication: PSORIASIS
     Route: 061
  10. EZETIMIBE (EZETIMIBE) (TABLET) [Suspect]
     Indication: HYPERLIPIDAEMIA
     Dosage: 10 MG (10 MG, 1 IN 1 D), ORAL
     Route: 048
     Dates: start: 20110121
  11. LOXONIN (LOXOPROFEN SODIUM) [Concomitant]

REACTIONS (4)
  - Large intestine polyp [None]
  - Diverticulum intestinal [None]
  - Haemorrhoids [None]
  - Gastrointestinal tract adenoma [None]
